FAERS Safety Report 11277643 (Version 2)
Quarter: 2015Q3

REPORT INFORMATION
  Report Type: Report from Study
  Country: DE (occurrence: DE)
  Receive Date: 20150716
  Receipt Date: 20150813
  Transmission Date: 20151125
  Serious: Yes (Death)
  Sender: FDA-Public Use
  Company Number: DE-INCYTE CORPORATION-2015IN003231

PATIENT
  Age: 93 Year
  Sex: Female

DRUGS (9)
  1. RAMIPRIL. [Concomitant]
     Active Substance: RAMIPRIL
     Dosage: 10 MG, QD
     Route: 065
     Dates: start: 20150527
  2. CONCOR [Concomitant]
     Active Substance: BISOPROLOL FUMARATE
     Indication: HYPERTENSION
     Dosage: 2.5 MG
     Route: 065
     Dates: start: 20070705, end: 20150427
  3. RAMIPRIL. [Concomitant]
     Active Substance: RAMIPRIL
     Indication: HYPERTENSION
     Dosage: 2.5 MG, QD
     Route: 065
     Dates: start: 20150304, end: 20150526
  4. CONCOR [Concomitant]
     Active Substance: BISOPROLOL FUMARATE
     Dosage: 6.25 MG, QD
     Route: 065
     Dates: start: 20150428
  5. MARCUMAR [Concomitant]
     Active Substance: PHENPROCOUMON
     Indication: COAGULOPATHY
     Route: 065
     Dates: start: 20150326
  6. INCB018424 [Suspect]
     Active Substance: RUXOLITINIB
     Dosage: 5 MG, QD (2 DF,QD)
     Route: 048
     Dates: start: 20140626
  7. AMLODIPINE [Concomitant]
     Active Substance: AMLODIPINE BESYLATE
     Dosage: 10 MG, QD
     Route: 065
     Dates: start: 20150428
  8. INCB018424 [Suspect]
     Active Substance: RUXOLITINIB
     Indication: MYELOFIBROSIS
     Dosage: 20 MG, QD (2DF, QD)
     Route: 048
     Dates: start: 20140619
  9. AMLODIPINE [Concomitant]
     Active Substance: AMLODIPINE BESYLATE
     Indication: HYPERTENSION
     Dosage: 5 MG, QD
     Route: 065
     Dates: start: 20150312, end: 20150427

REACTIONS (2)
  - Cardiac failure [Fatal]
  - Arterial occlusive disease [Fatal]

NARRATIVE: CASE EVENT DATE: 20150625
